FAERS Safety Report 14934171 (Version 1)
Quarter: 2018Q2

REPORT INFORMATION
  Report Type: Spontaneous
  Country: IN (occurrence: IN)
  Receive Date: 20180524
  Receipt Date: 20180524
  Transmission Date: 20180711
  Serious: Yes (Death, Other)
  Sender: FDA-Public Use
  Company Number: IN-JUBILANT CADISTA PHARMACEUTICALS-2018JUB00190

PATIENT
  Age: 23 Year
  Sex: Female

DRUGS (1)
  1. FOLIC ACID. [Suspect]
     Active Substance: FOLIC ACID
     Dosage: 30-40 TABLETS, ONCE
     Route: 048

REACTIONS (7)
  - Hepatic necrosis [Not Recovered/Not Resolved]
  - Toxicity to various agents [Fatal]
  - Metabolic acidosis [Not Recovered/Not Resolved]
  - Renal tubular necrosis [Not Recovered/Not Resolved]
  - Completed suicide [Fatal]
  - Shock [Not Recovered/Not Resolved]
  - Gastrointestinal perforation [Not Recovered/Not Resolved]
